FAERS Safety Report 11215352 (Version 2)
Quarter: 2015Q3

REPORT INFORMATION
  Report Type: Spontaneous
  Country: ES (occurrence: None)
  Receive Date: 20150622
  Receipt Date: 20150716
  Transmission Date: 20151125
  Serious: Yes (Hospitalization)
  Sender: FDA-Public Use
  Company Number: INT_00813_2015

PATIENT
  Age: 60 Year
  Sex: Female
  Weight: 48.2 kg

DRUGS (9)
  1. PEMETREXED (PEMETREXED) [Suspect]
     Active Substance: PEMETREXED
     Indication: NON-SMALL CELL LUNG CANCER
     Dosage: 500 MG/M2, 1X/21 DAYS, 2 CYCLES, INFUSED OVER APPROXIMATELY 10 MINS
     Route: 042
     Dates: start: 20100602
  2. OMEPRAZOLE. [Concomitant]
     Active Substance: OMEPRAZOLE
  3. RADIOTHERAPY [Suspect]
     Active Substance: RADIATION THERAPY
     Indication: NON-SMALL CELL LUNG CANCER
     Dosage: 2 GY ON DAY 1, THEN DAILY FOR 5 DAYS PER WEEK
     Dates: start: 20100719, end: 20100815
  4. FOLIC ACID. [Concomitant]
     Active Substance: FOLIC ACID
  5. URBAL [Concomitant]
  6. DIFLUCAN [Concomitant]
     Active Substance: FLUCONAZOLE
  7. CISPLATIN (CISPLATIN) (HQ SPECIALTY) [Suspect]
     Active Substance: CISPLATIN
     Indication: NON-SMALL CELL LUNG CANCER
     Dosage: 75 MG/M2, 1X/21 DAYS, 2 CYCLES
     Route: 042
     Dates: start: 20100602
  8. DEXAMETHASONE. [Concomitant]
     Active Substance: DEXAMETHASONE
  9. VITAMIN B12 [Concomitant]
     Active Substance: CYANOCOBALAMIN

REACTIONS (1)
  - Oesophagitis [None]

NARRATIVE: CASE EVENT DATE: 20100815
